FAERS Safety Report 9796338 (Version 1)
Quarter: 2014Q1

REPORT INFORMATION
  Report Type: Spontaneous
  Country: US (occurrence: US)
  Receive Date: 20140103
  Receipt Date: 20140103
  Transmission Date: 20141002
  Serious: No
  Sender: FDA-Public Use
  Company Number: US-BAYER-2014-000761

PATIENT
  Sex: Female

DRUGS (2)
  1. ALEVE CAPLET [Suspect]
  2. ADVIL [Concomitant]
     Indication: PAIN

REACTIONS (1)
  - Abdominal discomfort [None]
